FAERS Safety Report 21486019 (Version 1)
Quarter: 2022Q4

REPORT INFORMATION
  Report Type: Spontaneous
  Country: US (occurrence: None)
  Receive Date: 20221019
  Receipt Date: 20221019
  Transmission Date: 20230113
  Serious: No
  Sender: FDA-Public Use
  Company Number: None

PATIENT
  Age: 80 Year
  Sex: Male

DRUGS (1)
  1. RETACRIT [Suspect]
     Active Substance: EPOETIN ALFA-EPBX
     Dosage: 10,000 UNITS OTHER SUBCUTANEOUS
     Route: 058
     Dates: start: 20220906

REACTIONS (2)
  - Incorrect dose administered [None]
  - Wrong technique in device usage process [None]

NARRATIVE: CASE EVENT DATE: 20221019
